FAERS Safety Report 5928883-4 (Version None)
Quarter: 2008Q4

REPORT INFORMATION
  Report Type: 
  Country: None (occurrence: None)
  Receive Date: 20081021
  Receipt Date: 20081007
  Transmission Date: 20090506
  Serious: Yes (Hospitalization)
  Sender: FDA-Public Use
  Company Number: B0541968A

PATIENT
  Age: 38 Year
  Sex: Female

DRUGS (2)
  1. ABACAVIR SULFATE/LAMIVUDINE [Suspect]
     Indication: ANTIRETROVIRAL THERAPY
     Dosage: ORAL
     Route: 048
  2. LOPINAVIR AND RITONAVIR [Concomitant]

REACTIONS (12)
  - AGRANULOCYTOSIS [None]
  - ANAEMIA [None]
  - ASTHENIA [None]
  - CHILLS [None]
  - DECREASED APPETITE [None]
  - ERYTHEMA [None]
  - HEPATOMEGALY [None]
  - LIPOATROPHY [None]
  - NEUTROPENIA [None]
  - OEDEMA [None]
  - PYREXIA [None]
  - RASH [None]
